FAERS Safety Report 4951612-8 (Version None)
Quarter: 2006Q1

REPORT INFORMATION
  Report Type: 
  Country: None (occurrence: None)
  Receive Date: 20060320
  Receipt Date: 20060306
  Transmission Date: 20060701
  Serious: Yes (Hospitalization)
  Sender: FDA-Public Use
  Company Number: HQWYE778030NOV05

PATIENT
  Age: 58 Year
  Sex: Male

DRUGS (5)
  1. RAPAMUNE [Suspect]
     Indication: PROPHYLAXIS AGAINST TRANSPLANT REJECTION
     Dosage: SEE IMAGE
     Route: 048
     Dates: start: 20051111, end: 20051206
  2. RAPAMUNE [Suspect]
     Indication: PROPHYLAXIS AGAINST TRANSPLANT REJECTION
     Dosage: SEE IMAGE
     Route: 048
     Dates: start: 20051207, end: 20051221
  3. DOXAZOSIN [Concomitant]
  4. AMLODIPINE [Concomitant]
  5. CLORAZEPATE (CLORAZEPATE DIPOTASSIUM) [Concomitant]

REACTIONS (17)
  - BLOOD LACTATE DEHYDROGENASE INCREASED [None]
  - CONTRAST MEDIA REACTION [None]
  - DRUG INEFFECTIVE [None]
  - DRUG TOXICITY [None]
  - HAEMATOCRIT DECREASED [None]
  - HAEMODIALYSIS [None]
  - HAEMOGLOBIN DECREASED [None]
  - HAEMORRHAGIC INFARCTION [None]
  - KIDNEY TRANSPLANT REJECTION [None]
  - PLATELET COUNT DECREASED [None]
  - RED BLOOD CELL SCHISTOCYTES PRESENT [None]
  - RENAL IMPAIRMENT [None]
  - RENAL INFARCT [None]
  - RENAL TUBULAR NECROSIS [None]
  - THROMBOTIC MICROANGIOPATHY [None]
  - URINARY TRACT INFECTION PSEUDOMONAL [None]
  - VASCULAR GRAFT COMPLICATION [None]
